FAERS Safety Report 5455526-9 (Version None)
Quarter: 2007Q3

REPORT INFORMATION
  Report Type: 
  Country: None (occurrence: None)
  Receive Date: 20070918
  Receipt Date: 20070907
  Transmission Date: 20080115
  Serious: Yes (Life-Threatening)
  Sender: FDA-Public Use
  Company Number: JP-JNJFOC-20070804321

PATIENT
  Sex: Female
  Weight: 56 kg

DRUGS (18)
  1. REMICADE [Suspect]
     Route: 042
  2. REMICADE [Suspect]
     Route: 042
  3. REMICADE [Suspect]
     Route: 042
  4. REMICADE [Suspect]
     Route: 042
  5. REMICADE [Suspect]
     Route: 042
  6. REMICADE [Suspect]
     Route: 042
  7. REMICADE [Suspect]
     Indication: RHEUMATOID ARTHRITIS
     Route: 042
  8. ENBREL [Suspect]
     Indication: RHEUMATOID ARTHRITIS
     Dosage: USED FOR 1 YEAR.
     Route: 058
  9. RHEUMATREX [Concomitant]
     Route: 048
  10. RHEUMATREX [Concomitant]
     Indication: RHEUMATOID ARTHRITIS
     Route: 048
  11. ADRENAL HORMONE PREPARATIONS [Concomitant]
     Indication: RHEUMATOID ARTHRITIS
  12. PREDNISOLONE [Concomitant]
     Indication: RHEUMATOID ARTHRITIS
     Route: 048
  13. LOXONIN [Concomitant]
     Indication: RHEUMATOID ARTHRITIS
     Route: 048
  14. FOLIAMIN [Concomitant]
     Route: 048
  15. LANSOPRAZOLE [Concomitant]
     Route: 048
  16. DIPHENHYDRAMINE HYDROCHLORIDE [Concomitant]
     Indication: PREMEDICATION
     Route: 048
  17. AZULFIDINE EN-TABS [Concomitant]
     Indication: RHEUMATOID ARTHRITIS
  18. MOVER [Concomitant]
     Indication: RHEUMATOID ARTHRITIS

REACTIONS (3)
  - LARGE INTESTINE CARCINOMA [None]
  - PANCREATIC MASS [None]
  - RASH [None]
